FAERS Safety Report 14357088 (Version 2)
Quarter: 2018Q1

REPORT INFORMATION
  Report Type: Report from Study
  Country: US (occurrence: US)
  Receive Date: 20180105
  Receipt Date: 20180116
  Transmission Date: 20180509
  Serious: Yes (Death, Hospitalization)
  Sender: FDA-Public Use
  Company Number: US-EXELIXIS-CABO-17011883

PATIENT
  Sex: Male

DRUGS (13)
  1. MIRALAX [Concomitant]
     Active Substance: POLYETHYLENE GLYCOL 3350
  2. ROBAXIN [Concomitant]
     Active Substance: METHOCARBAMOL
  3. CABOMETYX [Suspect]
     Active Substance: CABOZANTINIB S-MALATE
     Indication: RENAL CANCER
     Dosage: 60 MG, QD
     Route: 048
     Dates: start: 20170709
  4. TAMSULOSIN [Concomitant]
     Active Substance: TAMSULOSIN
  5. ZOMETA [Concomitant]
     Active Substance: ZOLEDRONIC ACID
  6. NORCO [Concomitant]
     Active Substance: ACETAMINOPHEN\HYDROCODONE BITARTRATE
  7. SENNA [Concomitant]
     Active Substance: SENNA LEAF\SENNOSIDES\SENNOSIDES A AND B
  8. TRAMADOL. [Concomitant]
     Active Substance: TRAMADOL
  9. COLACE [Concomitant]
     Active Substance: DOCUSATE SODIUM
  10. CABOMETYX [Suspect]
     Active Substance: CABOZANTINIB S-MALATE
     Dosage: 40 MG, QD
     Route: 048
     Dates: start: 20171108
  11. INJECTAFER [Concomitant]
     Active Substance: FERRIC CARBOXYMALTOSE
  12. LACTULOSE. [Concomitant]
     Active Substance: LACTULOSE
  13. PREDNISONE. [Concomitant]
     Active Substance: PREDNISONE

REACTIONS (5)
  - Seizure [Fatal]
  - Nervous system disorder [Fatal]
  - Pneumonia [Fatal]
  - Apallic syndrome [Fatal]
  - Brain hypoxia [Fatal]
